FAERS Safety Report 4345327-7 (Version None)
Quarter: 2004Q2

REPORT INFORMATION
  Report Type: 
  Country: None (occurrence: None)
  Receive Date: 20040422
  Receipt Date: 20040422
  Transmission Date: 20050107
  Serious: Yes (Other)
  Sender: FDA-Public Use
  Company Number: None

PATIENT
  Age: 80 Year
  Sex: Female
  Weight: 45.8133 kg

DRUGS (1)
  1. CILOSTAZOL [Suspect]
     Dosage: 50MG BID ORAL
     Route: 048
     Dates: start: 20031220, end: 20031221

REACTIONS (3)
  - CHEST PAIN [None]
  - PALPITATIONS [None]
  - SYNCOPE [None]
